FAERS Safety Report 7647674-X (Version None)
Quarter: 2011Q3

REPORT INFORMATION
  Report Type: 
  Country: None (occurrence: None)
  Receive Date: 20110801
  Receipt Date: 20110801
  Transmission Date: 20111222
  Serious: Yes (Death, Life-Threatening, Hospitalization)
  Sender: FDA-Public Use
  Company Number: None

PATIENT
  Age: 37 Year
  Sex: Male
  Weight: 105.68 kg

DRUGS (1)
  1. BUTRANS [Suspect]
     Indication: MIGRAINE
     Dosage: 1 PATCH
     Route: 062
     Dates: start: 20110714, end: 20110716

REACTIONS (6)
  - MYOCLONUS [None]
  - LUNG DISORDER [None]
  - PNEUMONIA ASPIRATION [None]
  - RESUSCITATION [None]
  - AMNESIA [None]
  - BRAIN HYPOXIA [None]
